FAERS Safety Report 24623403 (Version 1)
Quarter: 2024Q4

REPORT INFORMATION
  Report Type: Spontaneous
  Country: CA (occurrence: CA)
  Receive Date: 20241115
  Receipt Date: 20241115
  Transmission Date: 20250114
  Serious: Yes (Other)
  Sender: BAUSCH AND LOMB
  Company Number: CA-BAUSCH-BL-2024-016716

PATIENT
  Age: 35 Year
  Sex: Male

DRUGS (21)
  1. CHLORDIAZEPOXIDE [Suspect]
     Active Substance: CHLORDIAZEPOXIDE
     Indication: Poor quality sleep
     Route: 065
  2. LITHIUM CARBONATE [Suspect]
     Active Substance: LITHIUM CARBONATE
     Indication: Affective disorder
     Dosage: DOSAGE FORM- NOT SPECIFIED
     Route: 048
  3. LITHIUM CARBONATE [Suspect]
     Active Substance: LITHIUM CARBONATE
     Route: 048
  4. ARIPIPRAZOLE [Suspect]
     Active Substance: ARIPIPRAZOLE
     Indication: Psychotic disorder
     Route: 048
  5. ARIPIPRAZOLE [Suspect]
     Active Substance: ARIPIPRAZOLE
     Route: 030
  6. ARIPIPRAZOLE [Suspect]
     Active Substance: ARIPIPRAZOLE
     Route: 030
  7. BENZTROPINE MESYLATE [Suspect]
     Active Substance: BENZTROPINE MESYLATE
     Indication: Dystonic tremor
     Dosage: 2 ADMINISTRATIONS
     Route: 065
  8. BENZTROPINE MESYLATE [Suspect]
     Active Substance: BENZTROPINE MESYLATE
     Indication: Dystonia
  9. CLONAZEPAM [Suspect]
     Active Substance: CLONAZEPAM
     Indication: Poor quality sleep
     Dosage: 3 ADMINISTRATIONS
     Route: 065
  10. CLONAZEPAM [Suspect]
     Active Substance: CLONAZEPAM
     Indication: Dystonia
     Route: 065
  11. LEVOMEPROMAZINE MALEATE [Suspect]
     Active Substance: LEVOMEPROMAZINE MALEATE
     Indication: Poor quality sleep
     Dosage: 4 ADMINIATRATIONS
     Route: 065
  12. OXAZEPAM [Suspect]
     Active Substance: OXAZEPAM
     Indication: Poor quality sleep
     Dosage: 2 ADMINISTARTIONS
     Route: 065
  13. QUETIAPINE FUMARATE [Suspect]
     Active Substance: QUETIAPINE FUMARATE
     Indication: Poor quality sleep
     Dosage: 2 ADMINISTRATIONS
     Route: 048
  14. QUETIAPINE FUMARATE [Suspect]
     Active Substance: QUETIAPINE FUMARATE
     Indication: Bipolar I disorder
  15. TEMAZEPAM [Suspect]
     Active Substance: TEMAZEPAM
     Indication: Poor quality sleep
     Dosage: 3 ADMINISTRATIONS
     Route: 065
  16. TEMAZEPAM [Suspect]
     Active Substance: TEMAZEPAM
     Route: 065
  17. ZOPICLONE [Suspect]
     Active Substance: ZOPICLONE
     Indication: Poor quality sleep
     Dosage: 2 ADMINISTRATIONS
     Route: 064
  18. LORAZEPAM [Concomitant]
     Active Substance: LORAZEPAM
     Indication: Product used for unknown indication
     Route: 065
  19. SERTRALINE [Concomitant]
     Active Substance: SERTRALINE HYDROCHLORIDE
     Indication: Depressed mood
     Dosage: 2 ADMINISTRATIONS
     Route: 065
  20. SERTRALINE [Concomitant]
     Active Substance: SERTRALINE HYDROCHLORIDE
     Indication: Bipolar I disorder
  21. VORTIOXETINE [Concomitant]
     Active Substance: VORTIOXETINE
     Indication: Antidepressant therapy
     Route: 048

REACTIONS (9)
  - Drug interaction [Unknown]
  - Dystonic tremor [Unknown]
  - Dystonia [Unknown]
  - Restlessness [Unknown]
  - Drug ineffective [Unknown]
  - Therapeutic product effect incomplete [Unknown]
  - Foetal exposure during pregnancy [Unknown]
  - Product use in unapproved indication [Unknown]
  - Off label use [Unknown]
